FAERS Safety Report 10369673 (Version 1)
Quarter: 2014Q3

REPORT INFORMATION
  Report Type: Spontaneous
  Country: US (occurrence: US)
  Receive Date: 20140807
  Receipt Date: 20140807
  Transmission Date: 20150326
  Serious: No
  Sender: FDA-Public Use
  Company Number: US-AMGEN-USASP2014053210

PATIENT
  Sex: Female

DRUGS (1)
  1. NPLATE [Suspect]
     Active Substance: ROMIPLOSTIM
     Indication: PRODUCT USED FOR UNKNOWN INDICATION
     Dosage: UNK UNK, QWK
     Route: 065

REACTIONS (5)
  - Joint lock [Unknown]
  - Erythema [Unknown]
  - Injection site haematoma [Recovered/Resolved]
  - Skin disorder [Unknown]
  - Adverse reaction [Unknown]

NARRATIVE: CASE EVENT DATE: 2013
